FAERS Safety Report 7244473-8 (Version None)
Quarter: 2011Q1

REPORT INFORMATION
  Report Type: 
  Country: None (occurrence: None)
  Receive Date: 20110125
  Receipt Date: 20110118
  Transmission Date: 20110831
  Serious: Yes (Other)
  Sender: FDA-Public Use
  Company Number: US-PFIZER INC-2011012448

PATIENT
  Sex: Male
  Weight: 97.506 kg

DRUGS (10)
  1. SIMVASTATIN [Concomitant]
     Dosage: UNK
  2. FOLIC ACID [Concomitant]
     Dosage: UNK
  3. AMIODARONE [Concomitant]
     Dosage: UNK
  4. DILANTIN [Suspect]
     Indication: CEREBROVASCULAR ACCIDENT
     Dosage: UNK
     Route: 048
  5. OXYBUTYNIN [Concomitant]
     Dosage: UNK
  6. PLAVIX [Concomitant]
     Dosage: UNK
  7. PHENYTOIN [Suspect]
     Dosage: UNK
  8. WARFARIN [Concomitant]
     Dosage: UNK
  9. ISOSORBIDE [Concomitant]
     Dosage: UNK
  10. LISINOPRIL [Concomitant]

REACTIONS (6)
  - MUSCULAR WEAKNESS [None]
  - CEREBROVASCULAR ACCIDENT [None]
  - ARTERIAL DISORDER [None]
  - CONGENITAL CYSTIC KIDNEY DISEASE [None]
  - CONVULSION [None]
  - ILL-DEFINED DISORDER [None]
